FAERS Safety Report 7294947-9 (Version None)
Quarter: 2011Q1

REPORT INFORMATION
  Report Type: 
  Country: None (occurrence: None)
  Receive Date: 20110216
  Receipt Date: 20110207
  Transmission Date: 20110831
  Serious: Yes (Hospitalization, Other)
  Sender: FDA-Public Use
  Company Number: US-BAYER-2011-013929

PATIENT
  Sex: Female

DRUGS (2)
  1. YASMIN [Suspect]
     Indication: PRODUCT USED FOR UNKNOWN INDICATION
     Dosage: 1 TBL/ DAY
     Dates: start: 20060101, end: 20090101
  2. AMOXICILLIN [Concomitant]
     Indication: SURGERY
     Dosage: UNK
     Dates: start: 20091201

REACTIONS (5)
  - DYSPNOEA EXERTIONAL [None]
  - DEEP VEIN THROMBOSIS [None]
  - OEDEMA PERIPHERAL [None]
  - PULMONARY EMBOLISM [None]
  - PAIN IN EXTREMITY [None]
